FAERS Safety Report 9575082 (Version 2)
Quarter: 2013Q4

REPORT INFORMATION
  Report Type: Spontaneous
  Country: US (occurrence: US)
  Receive Date: 20131001
  Receipt Date: 20131001
  Transmission Date: 20140711
  Serious: No
  Sender: FDA-Public Use
  Company Number: US-PURDUE-USA-2012-0080778

PATIENT
  Age: 72 Year
  Sex: Female
  Weight: 85.26 kg

DRUGS (2)
  1. BUTRANS [Suspect]
     Indication: BACK PAIN
     Dosage: 20 MCG, Q1H
     Route: 062
     Dates: start: 201108
  2. BUTRANS [Suspect]
     Indication: PAIN IN EXTREMITY
     Dosage: 10 MCG, Q1H
     Route: 062
     Dates: start: 201108

REACTIONS (6)
  - Activities of daily living impaired [Unknown]
  - Pain in extremity [Not Recovered/Not Resolved]
  - Musculoskeletal pain [Not Recovered/Not Resolved]
  - Pain [Not Recovered/Not Resolved]
  - Drug withdrawal syndrome [Recovered/Resolved]
  - Drug administered at inappropriate site [Recovered/Resolved]
